FAERS Safety Report 5871603-2 (Version None)
Quarter: 2008Q3

REPORT INFORMATION
  Report Type: 
  Country: None (occurrence: None)
  Receive Date: 20080905
  Receipt Date: 20080627
  Transmission Date: 20090109
  Serious: No
  Sender: FDA-Public Use
  Company Number: A0734948A

PATIENT
  Age: 70 Year
  Sex: Female

DRUGS (5)
  1. REQUIP [Suspect]
     Indication: RESTLESS LEGS SYNDROME
     Dosage: .25MG PER DAY
     Route: 048
     Dates: start: 20080624
  2. SYNTHROID [Concomitant]
  3. TYLENOL (CAPLET) [Concomitant]
  4. LORAZEPAM [Concomitant]
  5. DIOVAN [Concomitant]

REACTIONS (4)
  - FEELING HOT [None]
  - HEART RATE INCREASED [None]
  - PAIN IN EXTREMITY [None]
  - SOMNOLENCE [None]
